FAERS Safety Report 7092328-4 (Version None)
Quarter: 2010Q4

REPORT INFORMATION
  Report Type: 
  Country: None (occurrence: None)
  Receive Date: 20101109
  Receipt Date: 20101027
  Transmission Date: 20110411
  Serious: Yes (Other)
  Sender: FDA-Public Use
  Company Number: GB-MYLANLABS-2010S1019764

PATIENT
  Age: 94 Year
  Sex: Female

DRUGS (6)
  1. OMEPRAZOLE [Suspect]
     Indication: DYSPEPSIA
     Route: 048
     Dates: start: 20100802, end: 20100901
  2. AMOXICILLIN [Concomitant]
     Indication: PRODUCT USED FOR UNKNOWN INDICATION
     Route: 048
     Dates: start: 20100802, end: 20100809
  3. BETAHISTINE [Concomitant]
     Indication: VERTIGO
     Route: 048
     Dates: start: 20100820, end: 20101001
  4. EPILIM [Concomitant]
     Indication: EPILEPSY
     Route: 048
  5. FUROSEMIDE [Concomitant]
     Indication: HYPERTENSION
     Route: 048
  6. METRONIDAZOLE [Concomitant]
     Indication: PRODUCT USED FOR UNKNOWN INDICATION
     Route: 040
     Dates: start: 20100802, end: 20100809

REACTIONS (3)
  - DEPRESSION [None]
  - NIGHTMARE [None]
  - SUICIDAL IDEATION [None]
